FAERS Safety Report 6076479-9 (Version None)
Quarter: 2009Q1

REPORT INFORMATION
  Report Type: 
  Country: None (occurrence: None)
  Receive Date: 20090213
  Receipt Date: 20090210
  Transmission Date: 20090719
  Serious: Yes (Other)
  Sender: FDA-Public Use
  Company Number: US-JNJFOC-20090202946

PATIENT
  Age: 57 Year
  Sex: Female

DRUGS (1)
  1. RENOVA 0.02% [Suspect]
     Indication: THERAPEUTIC PROCEDURE
     Route: 061

REACTIONS (2)
  - ARRHYTHMIA [None]
  - DRY SKIN [None]
